FAERS Safety Report 7735072-X (Version None)
Quarter: 2011Q3

REPORT INFORMATION
  Report Type: 
  Country: None (occurrence: None)
  Receive Date: 20110817
  Receipt Date: 20101116
  Transmission Date: 20111222
  Serious: Yes (Hospitalization, Other)
  Sender: FDA-Public Use
  Company Number: 20108585

PATIENT
  Sex: Male

DRUGS (1)
  1. LIORESAL [Suspect]
     Indication: MUSCLE SPASTICITY
     Dosage: MCG, DAILY, INTRATHECAL - SEE B

REACTIONS (9)
  - HYPERTONIA [None]
  - DEVICE OCCLUSION [None]
  - MUSCLE TIGHTNESS [None]
  - AGITATION [None]
  - MEDICAL DEVICE CHANGE [None]
  - DRUG WITHDRAWAL SYNDROME [None]
  - MUSCLE SPASMS [None]
  - TREMOR [None]
  - PYREXIA [None]
